FAERS Safety Report 24531560 (Version 1)
Quarter: 2024Q4

REPORT INFORMATION
  Report Type: Report from Study
  Country: US (occurrence: US)
  Receive Date: 20241022
  Receipt Date: 20241022
  Transmission Date: 20250114
  Serious: No
  Sender: ROCHE
  Company Number: US-ROCHE-3511537

PATIENT
  Age: 9 Year
  Sex: Male

DRUGS (6)
  1. PULMOZYME [Suspect]
     Active Substance: DORNASE ALFA
     Indication: Infective pulmonary exacerbation of cystic fibrosis
     Route: 065
  2. ZENPEP [Concomitant]
     Active Substance: PANCRELIPASE AMYLASE\PANCRELIPASE LIPASE\PANCRELIPASE PROTEASE
  3. SODIUM CHLORIDE [Concomitant]
     Active Substance: SODIUM CHLORIDE
  4. TRIKAFTA [Concomitant]
     Active Substance: ELEXACAFTOR\IVACAFTOR\TEZACAFTOR
  5. SYMBICORT [Concomitant]
     Active Substance: BUDESONIDE\FORMOTEROL FUMARATE DIHYDRATE
  6. FLONASE [Concomitant]
     Active Substance: FLUTICASONE PROPIONATE

REACTIONS (2)
  - Off label use [Unknown]
  - No adverse event [Unknown]
